FAERS Safety Report 4975007-6 (Version None)
Quarter: 2006Q2

REPORT INFORMATION
  Report Type: 
  Country: None (occurrence: None)
  Receive Date: 20060414
  Receipt Date: 20060414
  Transmission Date: 20061013
  Serious: Yes (Life-Threatening)
  Sender: FDA-Public Use
  Company Number: None

PATIENT
  Age: 52 Year
  Sex: Male

DRUGS (2)
  1. NEOSTIGMINE [Suspect]
     Indication: ILEUS
     Dosage: 1 MG   ONE TIME  IV
     Route: 042
     Dates: start: 20051123, end: 20051123
  2. NEOSTIGMINE [Suspect]
     Indication: NEUROGENIC BOWEL
     Dosage: 1 MG   ONE TIME  IV
     Route: 042
     Dates: start: 20051123, end: 20051123

REACTIONS (3)
  - CARDIAC ARREST [None]
  - PROCEDURAL COMPLICATION [None]
  - TACHYCARDIA [None]
